FAERS Safety Report 19963122 (Version 1)
Quarter: 2021Q4

REPORT INFORMATION
  Report Type: Spontaneous
  Country: US (occurrence: US)
  Receive Date: 20211015
  Receipt Date: 20211015
  Transmission Date: 20220304
  Serious: Yes (Other)
  Sender: FDA-Public Use
  Company Number: None

PATIENT
  Age: 64 Year
  Sex: Female
  Weight: 87.75 kg

DRUGS (16)
  1. HIZENTRA [Suspect]
     Active Substance: HUMAN IMMUNOGLOBULIN G
     Indication: Primary immunodeficiency syndrome
     Dosage: ?          QUANTITY:10 INJECTION(S);OTHER FREQUENCY:WEEKLY;OTHER ROUTE:SUBCUTANEOUS
  2. CRESTOR [Concomitant]
     Active Substance: ROSUVASTATIN CALCIUM
  3. LEXAPRO [Concomitant]
     Active Substance: ESCITALOPRAM OXALATE
  4. ZETIA [Concomitant]
     Active Substance: EZETIMIBE
  5. FENOFIBRATE [Concomitant]
     Active Substance: FENOFIBRATE
  6. DICLOFENAC SODIUM [Concomitant]
     Active Substance: DICLOFENAC SODIUM
  7. ESCITALOPRAM [Concomitant]
     Active Substance: ESCITALOPRAM OXALATE
  8. COLONIZING [Concomitant]
  9. TRIAMTERENE [Concomitant]
     Active Substance: TRIAMTERENE
  10. VIT-GARD [Concomitant]
  11. VITAMINS [Concomitant]
     Active Substance: VITAMINS
  12. ZINC [Concomitant]
     Active Substance: ZINC
  13. VITAMIN D NOS [Concomitant]
     Active Substance: VITAMIN D NOS
  14. BIOTIN [Concomitant]
     Active Substance: BIOTIN
  15. MAGNESIUM [Concomitant]
     Active Substance: MAGNESIUM
  16. ASPIRIN [Concomitant]
     Active Substance: ASPIRIN

REACTIONS (7)
  - Infusion site urticaria [None]
  - Infusion site erythema [None]
  - Infusion site induration [None]
  - Infusion site swelling [None]
  - Infusion site pruritus [None]
  - Infusion site pain [None]
  - Infusion site pain [None]

NARRATIVE: CASE EVENT DATE: 20211014
